FAERS Safety Report 5238040-5 (Version None)
Quarter: 2007Q1

REPORT INFORMATION
  Report Type: 
  Country: None (occurrence: None)
  Receive Date: 20070214
  Receipt Date: 20070206
  Transmission Date: 20070707
  Serious: Yes (Other)
  Sender: FDA-Public Use
  Company Number: BR-PFIZER INC-2007010892

PATIENT
  Age: 66 Year
  Sex: Female

DRUGS (6)
  1. ALDACTONE [Suspect]
     Dosage: FREQ:1 DF BID
     Route: 048
  2. CAPTOPRIL [Concomitant]
     Route: 048
  3. METFORMIN HCL [Concomitant]
     Route: 048
  4. GLYBURIDE [Concomitant]
     Route: 048
  5. POTASSIUM CHLORIDE [Concomitant]
     Route: 065
  6. FUROSEMIDE [Concomitant]
     Route: 065

REACTIONS (2)
  - BLOOD PRESSURE INADEQUATELY CONTROLLED [None]
  - DECREASED APPETITE [None]
